FAERS Safety Report 9878574 (Version 1)
Quarter: 2014Q1

REPORT INFORMATION
  Report Type: Report from Study
  Country: CA (occurrence: CA)
  Receive Date: 20140206
  Receipt Date: 20140206
  Transmission Date: 20141002
  Serious: Yes (Other)
  Sender: FDA-Public Use
  Company Number: CA-BRISTOL-MYERS SQUIBB COMPANY-20107876

PATIENT
  Age: 82 Year
  Sex: Female

DRUGS (4)
  1. ABATACEPT SUBQ INJECTION 125MG/ML [Suspect]
     Indication: RHEUMATOID ARTHRITIS
     Dosage: 1DF:125
     Route: 058
     Dates: start: 20131129
  2. CARVEDILOL [Concomitant]
  3. APO-HYDROXYQUINE [Concomitant]
  4. ASPIRIN [Concomitant]

REACTIONS (3)
  - Transient ischaemic attack [Unknown]
  - Formication [Unknown]
  - Peripheral coldness [Unknown]
